FAERS Safety Report 8069516-3 (Version None)
Quarter: 2012Q1

REPORT INFORMATION
  Report Type: 
  Country: None (occurrence: None)
  Receive Date: 20120119
  Receipt Date: 20120105
  Transmission Date: 20120608
  Serious: Yes (Life-Threatening, Other)
  Sender: FDA-Public Use
  Company Number: JPI-P-019019

PATIENT
  Age: 35 Year
  Sex: Female
  Weight: 117.9352 kg

DRUGS (2)
  1. XYREM [Suspect]
     Indication: NARCOLEPSY
     Dosage: 4.5 GM (2.25 GM, 2 IN 1 D), ORAL;9 GM(4.5 GM, 2 IN 1 D), ORAL
     Route: 048
     Dates: start: 20090101
  2. XYREM [Suspect]
     Indication: NARCOLEPSY
     Dosage: 4.5 GM (2.25 GM, 2 IN 1 D), ORAL;9 GM(4.5 GM, 2 IN 1 D), ORAL
     Route: 048
     Dates: end: 20120101

REACTIONS (5)
  - PULMONARY EMBOLISM [None]
  - POST PROCEDURAL COMPLICATION [None]
  - RESPIRATORY FAILURE [None]
  - MENORRHAGIA [None]
  - HYPERCOAGULATION [None]
